FAERS Safety Report 4296365-4 (Version None)
Quarter: 2004Q1

REPORT INFORMATION
  Report Type: 
  Country: None (occurrence: None)
  Receive Date: 20040217
  Receipt Date: 20040209
  Transmission Date: 20041129
  Serious: Yes (Hospitalization)
  Sender: FDA-Public Use
  Company Number: 200410985US

PATIENT
  Sex: Female

DRUGS (4)
  1. ARAVA [Suspect]
     Route: 048
     Dates: start: 20000101
  2. ENBREL [Suspect]
     Indication: PSORIASIS
     Route: 058
     Dates: start: 20030501, end: 20030801
  3. HYDROXYCHLOROQUINE [Concomitant]
  4. NAPROXEN [Concomitant]

REACTIONS (4)
  - BONE INFECTION [None]
  - LIVER FUNCTION TEST ABNORMAL [None]
  - LUNG ABSCESS [None]
  - SPONDYLITIS [None]
